FAERS Safety Report 23701086 (Version 1)
Quarter: 2024Q2

REPORT INFORMATION
  Report Type: Other
  Country: JP (occurrence: JP)
  Receive Date: 20240403
  Receipt Date: 20240403
  Transmission Date: 20240715
  Serious: Yes (Other)
  Sender: FDA-Public Use
  Company Number: JP-CHUGAI-2024007887

PATIENT
  Age: 67 Year
  Sex: Female

DRUGS (2)
  1. CELLCEPT [Suspect]
     Active Substance: MYCOPHENOLATE MOFETIL
     Indication: Prophylaxis against transplant rejection
     Dosage: UNK
     Route: 065
  2. ROXADUSTAT [Concomitant]
     Active Substance: ROXADUSTAT

REACTIONS (3)
  - Pulmonary artery thrombosis [Recovered/Resolved]
  - Cytomegalovirus viraemia [Unknown]
  - COVID-19 [Unknown]
